FAERS Safety Report 7911553-0 (Version None)
Quarter: 2011Q4

REPORT INFORMATION
  Report Type: 
  Country: None (occurrence: None)
  Receive Date: 20111114
  Receipt Date: 20111109
  Transmission Date: 20120403
  Serious: Yes (Other)
  Sender: FDA-Public Use
  Company Number: US-BAYER-2011-109321

PATIENT
  Age: 74 Year
  Sex: Male

DRUGS (5)
  1. PYRIDOSTIGMINE BROMIDE [Concomitant]
  2. MOTRIN [Suspect]
     Indication: ARTHRALGIA
  3. ASPIRIN [Suspect]
     Indication: ARTHRALGIA
     Dosage: UNK, PRN
     Route: 048
  4. DYNACIRC [Concomitant]
  5. NEXIUM [Concomitant]

REACTIONS (1)
  - HAEMATEMESIS [None]
